FAERS Safety Report 9903835 (Version 1)
Quarter: 2014Q1

REPORT INFORMATION
  Report Type: Spontaneous
  Country: US (occurrence: US)
  Receive Date: 20140218
  Receipt Date: 20140218
  Transmission Date: 20141002
  Serious: No
  Sender: FDA-Public Use
  Company Number: US-BIOGENIDEC-2014BI013181

PATIENT
  Sex: Female

DRUGS (2)
  1. TYSABRI [Suspect]
     Indication: MULTIPLE SCLEROSIS
     Route: 042
     Dates: start: 20121220, end: 20131031
  2. CHICKEN POX VACCINATION [Concomitant]

REACTIONS (3)
  - Insomnia [Not Recovered/Not Resolved]
  - Hypersensitivity [Unknown]
  - Influenza [Recovered/Resolved]
